FAERS Safety Report 8431405-X (Version None)
Quarter: 2012Q2

REPORT INFORMATION
  Report Type: 
  Country: None (occurrence: None)
  Receive Date: 20120605
  Receipt Date: 20120529
  Transmission Date: 20120825
  Serious: Yes (Other)
  Sender: FDA-Public Use
  Company Number: 2012MA006778

PATIENT
  Age: 88 Year
  Sex: Female

DRUGS (5)
  1. PREDNISONE [Concomitant]
  2. FEVERALL [Suspect]
     Dates: start: 20120517
  3. QUININE SULFATE [Concomitant]
  4. FUROSEMIDE [Concomitant]
  5. EPADERM [Concomitant]

REACTIONS (3)
  - RASH [None]
  - GROIN PAIN [None]
  - ORAL DISORDER [None]
